FAERS Safety Report 7775551-2 (Version None)
Quarter: 2011Q3

REPORT INFORMATION
  Report Type: 
  Country: None (occurrence: None)
  Receive Date: 20110923
  Receipt Date: 20110914
  Transmission Date: 20111222
  Serious: Yes (Other)
  Sender: FDA-Public Use
  Company Number: NL-JNJFOC-20110902441

PATIENT
  Sex: Male

DRUGS (7)
  1. AZATHIOPRINE [Suspect]
     Indication: CROHN'S DISEASE
     Route: 065
     Dates: start: 19971001, end: 20080901
  2. REMICADE [Suspect]
     Indication: CROHN'S DISEASE
     Route: 042
     Dates: start: 20090901
  3. ASACOL [Concomitant]
     Route: 065
     Dates: start: 20000701, end: 20050401
  4. REMICADE [Suspect]
     Route: 042
     Dates: start: 20010901, end: 20080801
  5. ASACOL [Concomitant]
     Route: 065
     Dates: start: 19950701, end: 19960401
  6. ENTOCORT EC [Concomitant]
     Route: 065
     Dates: start: 20000201, end: 20020201
  7. ASACOL [Concomitant]
     Route: 065
     Dates: start: 20050401, end: 20080901

REACTIONS (1)
  - DIFFUSE LARGE B-CELL LYMPHOMA [None]
